FAERS Safety Report 12695445 (Version 1)
Quarter: 2016Q3

REPORT INFORMATION
  Report Type: Spontaneous
  Country: US (occurrence: US)
  Receive Date: 20160829
  Receipt Date: 20160829
  Transmission Date: 20161109
  Serious: Yes (Other)
  Sender: FDA-Public Use
  Company Number: US-JNJFOC-20160823809

PATIENT
  Sex: Male
  Weight: 113.4 kg

DRUGS (6)
  1. LEVAQUIN [Suspect]
     Active Substance: LEVOFLOXACIN
     Indication: SINUSITIS
     Route: 048
     Dates: start: 2016, end: 2016
  2. LEVAQUIN [Suspect]
     Active Substance: LEVOFLOXACIN
     Indication: PHARYNGITIS
     Route: 048
     Dates: start: 2016, end: 2016
  3. LEVAQUIN [Suspect]
     Active Substance: LEVOFLOXACIN
     Indication: SINUSITIS
     Route: 048
     Dates: start: 2016, end: 2016
  4. LEVAQUIN [Suspect]
     Active Substance: LEVOFLOXACIN
     Indication: SINUSITIS
     Route: 048
     Dates: start: 201411
  5. LEVAQUIN [Suspect]
     Active Substance: LEVOFLOXACIN
     Indication: PHARYNGITIS
     Route: 048
     Dates: start: 201411
  6. LEVAQUIN [Suspect]
     Active Substance: LEVOFLOXACIN
     Indication: PHARYNGITIS
     Route: 048
     Dates: start: 2016, end: 2016

REACTIONS (8)
  - Therapeutic response unexpected [Unknown]
  - Polyarthritis [Unknown]
  - Swelling [Unknown]
  - Agitation [Unknown]
  - Pain [Unknown]
  - Rash [Unknown]
  - Carpal tunnel syndrome [Unknown]
  - Asthenia [Unknown]

NARRATIVE: CASE EVENT DATE: 2014
